FAERS Safety Report 4497101-9 (Version None)
Quarter: 2004Q4

REPORT INFORMATION
  Report Type: 
  Country: None (occurrence: None)
  Receive Date: 20041110
  Receipt Date: 20041101
  Transmission Date: 20050328
  Serious: Yes (Hospitalization, Other)
  Sender: FDA-Public Use
  Company Number: GB-JNJFOC-20040909545

PATIENT
  Sex: Male
  Weight: 90 kg

DRUGS (8)
  1. REOPRO [Suspect]
     Indication: ANGIOPLASTY
     Route: 042
  2. HEPARIN [Suspect]
     Indication: ANGIOPLASTY
     Route: 042
  3. CLOPIDOGREL [Concomitant]
     Indication: STENT PLACEMENT
     Route: 049
  4. AMLODIPINE [Concomitant]
     Indication: HYPERTENSION
     Route: 049
  5. DOXEZOSIN [Concomitant]
     Indication: HYPERTENSION
     Route: 049
  6. ASPIRIN [Concomitant]
     Indication: PROPHYLAXIS
     Route: 049
  7. SIMVASTATIN [Concomitant]
     Route: 049
  8. ISOSORBIDE MONONITRATE [Concomitant]
     Indication: ANGINA PECTORIS
     Route: 049

REACTIONS (2)
  - BLOOD CREATININE INCREASED [None]
  - EPISTAXIS [None]
